FAERS Safety Report 6892292-4 (Version None)
Quarter: 2010Q3

REPORT INFORMATION
  Report Type: 
  Country: None (occurrence: None)
  Receive Date: 20100731
  Receipt Date: 20080328
  Transmission Date: 20110219
  Serious: No
  Sender: FDA-Public Use
  Company Number: US-PFIZER INC-2008030575

PATIENT
  Age: 35 Year
  Sex: Female

DRUGS (1)
  1. CAVERJECT [Suspect]
     Dosage: 20 MCG
     Route: 050
     Dates: start: 20080201

REACTIONS (3)
  - ACCIDENTAL EXPOSURE [None]
  - VULVOVAGINAL BURNING SENSATION [None]
  - VULVOVAGINAL DISCOMFORT [None]
